FAERS Safety Report 21965103 (Version 2)
Quarter: 2023Q1

REPORT INFORMATION
  Report Type: Report from Study
  Country: EG (occurrence: None)
  Receive Date: 20230207
  Receipt Date: 20230321
  Transmission Date: 20230418
  Serious: Yes (Life-Threatening, Other)
  Sender: FDA-Public Use
  Company Number: EG-Merck Healthcare KGaA-9382365

PATIENT
  Sex: Female

DRUGS (1)
  1. REBIF [Suspect]
     Active Substance: INTERFERON BETA-1A
     Indication: Multiple sclerosis
     Route: 058
     Dates: start: 20210124

REACTIONS (3)
  - Endotracheal intubation [Unknown]
  - Device related infection [Unknown]
  - Immunosuppression [Unknown]
